FAERS Safety Report 16868697 (Version 1)
Quarter: 2019Q3

REPORT INFORMATION
  Report Type: Spontaneous
  Country: JP (occurrence: JP)
  Receive Date: 20190930
  Receipt Date: 20190930
  Transmission Date: 20191005
  Serious: Yes (Other)
  Sender: FDA-Public Use
  Company Number: JP-JNJFOC-20190935637

PATIENT
  Age: 44 Year
  Sex: Female

DRUGS (6)
  1. PIMOZIDE. [Suspect]
     Active Substance: PIMOZIDE
     Indication: HUNTINGTON^S DISEASE
     Route: 065
  2. HALOPERIDOL. [Suspect]
     Active Substance: HALOPERIDOL
     Indication: HUNTINGTON^S DISEASE
     Route: 065
  3. CLOMIPRAMINE HYDROCHLORIDE. [Suspect]
     Active Substance: CLOMIPRAMINE HYDROCHLORIDE
     Indication: HUNTINGTON^S DISEASE
     Route: 065
  4. IMIPRAMINE HYDROCHLORIDE. [Suspect]
     Active Substance: IMIPRAMINE HYDROCHLORIDE
     Indication: HUNTINGTON^S DISEASE
     Route: 065
  5. THIORIDAZINE [Suspect]
     Active Substance: THIORIDAZINE
     Indication: HUNTINGTON^S DISEASE
     Route: 065
  6. SULPIRIDE [Suspect]
     Active Substance: SULPIRIDE
     Indication: HUNTINGTON^S DISEASE
     Route: 065

REACTIONS (2)
  - Hydrocephalus [Unknown]
  - Neuroleptic malignant syndrome [Unknown]
